FAERS Safety Report 4916736-X (Version None)
Quarter: 2006Q1

REPORT INFORMATION
  Report Type: 
  Country: None (occurrence: None)
  Receive Date: 20060214
  Receipt Date: 20060203
  Transmission Date: 20060701
  Serious: Yes (Other)
  Sender: FDA-Public Use
  Company Number: 2006011220

PATIENT
  Age: 75 Year
  Sex: Male

DRUGS (3)
  1. LYRICA [Suspect]
     Indication: NEURALGIA
     Dosage: 600 MG (300 MG, 2 IN 1 D), ORAL
     Route: 048
  2. VENLAFAXINE HCL [Suspect]
     Indication: ILL-DEFINED DISORDER
  3. OXYCONTIN [Concomitant]

REACTIONS (5)
  - COORDINATION ABNORMAL [None]
  - DISEASE RECURRENCE [None]
  - FALL [None]
  - NEURALGIA [None]
  - VERTIGO [None]
